FAERS Safety Report 5927985-6 (Version None)
Quarter: 2008Q4

REPORT INFORMATION
  Report Type: 
  Country: None (occurrence: None)
  Receive Date: 20081022
  Receipt Date: 20081022
  Transmission Date: 20090506
  Serious: Yes (Hospitalization)
  Sender: FDA-Public Use
  Company Number: None

PATIENT
  Age: 32 Year
  Sex: Female
  Weight: 114.76 kg

DRUGS (18)
  1. ACYCLOVIR SODIUM [Suspect]
     Indication: ENCEPHALITIS VIRAL
     Dosage: 1150 MG EVERY 8 HOURS IV
     Route: 042
     Dates: start: 20081011, end: 20081012
  2. ACYCLOVIR SODIUM [Suspect]
     Indication: MENINGITIS VIRAL
     Dosage: 1150 MG EVERY 8 HOURS IV
     Route: 042
     Dates: start: 20081011, end: 20081012
  3. TYLENOL [Concomitant]
  4. CYCLOBENZAPRINE HCL [Concomitant]
  5. DIAZEPAM [Concomitant]
  6. DIPHENHYDRAMINE HCL [Concomitant]
  7. ENOXAPARIN SODIUM [Concomitant]
  8. FENTANYL [Concomitant]
  9. HEPARIN [Concomitant]
  10. HYDROMORPHONE HCL [Concomitant]
  11. LOVOTHYROXINE [Concomitant]
  12. LORAZEPAM [Concomitant]
  13. ONDANSOTRON [Concomitant]
  14. OXYCODONE HCL [Concomitant]
  15. PANTOPRAZOLE SODIUM [Concomitant]
  16. PHENYTOIN EXTENDED RELEASE [Concomitant]
  17. VENLAFAXINE HCL [Concomitant]
  18. VICODIN [Concomitant]

REACTIONS (2)
  - RENAL FAILURE ACUTE [None]
  - RENAL TUBULAR NECROSIS [None]
